FAERS Safety Report 21977663 (Version 1)
Quarter: 2023Q1

REPORT INFORMATION
  Report Type: Report from Study
  Country: US (occurrence: US)
  Receive Date: 20230210
  Receipt Date: 20230210
  Transmission Date: 20230418
  Serious: Yes (Hospitalization)
  Sender: FDA-Public Use
  Company Number: US-002147023-NVSC2023US026926

PATIENT
  Sex: Female

DRUGS (1)
  1. ENTRESTO [Suspect]
     Active Substance: SACUBITRIL\VALSARTAN
     Indication: Cardiac failure congestive
     Dosage: UNK (ROUND AUGUST OR SEPT OF 2022)
     Route: 065
     Dates: start: 2022

REACTIONS (3)
  - Fluid retention [Unknown]
  - Productive cough [Unknown]
  - Joint swelling [Unknown]
